FAERS Safety Report 16778002 (Version 2)
Quarter: 2024Q2

REPORT INFORMATION
  Report Type: Spontaneous
  Country: CA (occurrence: CA)
  Receive Date: 20190905
  Receipt Date: 20240425
  Transmission Date: 20240715
  Serious: Yes (Life-Threatening, Hospitalization, Other)
  Sender: FDA-Public Use
  Company Number: CA-BAUSCH-BL-2019-024991

PATIENT
  Age: 52 Year
  Sex: Male

DRUGS (47)
  1. LORAZEPAM [Interacting]
     Active Substance: LORAZEPAM
     Indication: Insomnia
     Route: 048
  2. LORAZEPAM [Interacting]
     Active Substance: LORAZEPAM
     Route: 048
  3. DIAZEPAM [Interacting]
     Active Substance: DIAZEPAM
     Indication: Spinal stenosis
     Route: 065
  4. ALTACE [Interacting]
     Active Substance: RAMIPRIL
     Indication: Product used for unknown indication
     Route: 065
  5. DIAZEPAM [Interacting]
     Active Substance: DIAZEPAM
     Indication: Spinal stenosis
     Route: 048
  6. DIAZEPAM [Interacting]
     Active Substance: DIAZEPAM
     Route: 048
  7. CIPRALEX [Interacting]
     Active Substance: ESCITALOPRAM OXALATE
     Indication: Depression
     Route: 065
  8. CIPRALEX [Interacting]
     Active Substance: ESCITALOPRAM OXALATE
     Route: 048
  9. CIPRALEX [Interacting]
     Active Substance: ESCITALOPRAM OXALATE
     Route: 065
  10. MORPHINE [Interacting]
     Active Substance: MORPHINE
     Indication: Spinal stenosis
     Route: 048
  11. MORPHINE [Interacting]
     Active Substance: MORPHINE
     Indication: Depression
     Route: 065
  12. MORPHINE [Interacting]
     Active Substance: MORPHINE
     Route: 065
  13. MORPHINE [Interacting]
     Active Substance: MORPHINE
     Route: 065
  14. MORPHINE [Interacting]
     Active Substance: MORPHINE
     Route: 065
  15. MORPHINE [Interacting]
     Active Substance: MORPHINE
     Route: 065
  16. MORPHINE [Interacting]
     Active Substance: MORPHINE
     Route: 048
  17. MORPHINE [Interacting]
     Active Substance: MORPHINE
     Route: 048
  18. MORPHINE [Interacting]
     Active Substance: MORPHINE
     Route: 065
  19. MORPHINE [Interacting]
     Active Substance: MORPHINE
     Dosage: MORPHINE SULFATE
     Route: 065
  20. MORPHINE [Interacting]
     Active Substance: MORPHINE
     Dosage: MORPHINE SULFATE
     Route: 048
  21. MORPHINE [Interacting]
     Active Substance: MORPHINE
     Dosage: MORPHINE SULFATE
     Route: 065
  22. MORPHINE [Interacting]
     Active Substance: MORPHINE
     Dosage: MORPHINE SULFATE
     Route: 065
  23. MORPHINE [Interacting]
     Active Substance: MORPHINE
     Dosage: MORPHINE SULFATE
     Route: 065
  24. MORPHINE [Interacting]
     Active Substance: MORPHINE
     Dosage: MORPHINE SULFATE
     Route: 065
  25. MORPHINE [Interacting]
     Active Substance: MORPHINE
     Dosage: MORPHINE SULFATE
     Route: 048
  26. MORPHINE [Interacting]
     Active Substance: MORPHINE
     Dosage: MORPHINE SULFATE
     Route: 048
  27. OXYCODONE [Interacting]
     Active Substance: OXYCODONE\OXYCODONE HYDROCHLORIDE
     Indication: Spinal stenosis
     Route: 065
  28. OXYCODONE [Interacting]
     Active Substance: OXYCODONE\OXYCODONE HYDROCHLORIDE
     Route: 048
  29. OXYCODONE [Interacting]
     Active Substance: OXYCODONE\OXYCODONE HYDROCHLORIDE
     Route: 048
  30. OXYCODONE [Interacting]
     Active Substance: OXYCODONE\OXYCODONE HYDROCHLORIDE
     Route: 065
  31. OXYCODONE [Interacting]
     Active Substance: OXYCODONE\OXYCODONE HYDROCHLORIDE
     Dosage: OXYCODONE?HYDROCHLORIDE
     Route: 048
  32. OXYCODONE [Interacting]
     Active Substance: OXYCODONE\OXYCODONE HYDROCHLORIDE
     Dosage: OXYCODONE?HYDROCHLORIDE
     Route: 065
  33. OXYCODONE [Interacting]
     Active Substance: OXYCODONE\OXYCODONE HYDROCHLORIDE
     Dosage: OXYCODONE?HYDROCHLORIDE
     Route: 065
  34. OXYCODONE [Interacting]
     Active Substance: OXYCODONE\OXYCODONE HYDROCHLORIDE
     Dosage: OXYCODONE?HYDROCHLORIDE
     Route: 065
  35. ZOPICLONE [Interacting]
     Active Substance: ZOPICLONE
     Indication: Insomnia
     Route: 065
  36. ZOPICLONE [Interacting]
     Active Substance: ZOPICLONE
     Route: 048
  37. ZOPICLONE [Interacting]
     Active Substance: ZOPICLONE
     Route: 048
  38. ACETAMINOPHEN\OXYCODONE HYDROCHLORIDE [Interacting]
     Active Substance: ACETAMINOPHEN\OXYCODONE HYDROCHLORIDE
     Indication: Product used for unknown indication
     Route: 048
  39. ACETAMINOPHEN\OXYCODONE HYDROCHLORIDE [Interacting]
     Active Substance: ACETAMINOPHEN\OXYCODONE HYDROCHLORIDE
     Route: 048
  40. CITALOPRAM [Interacting]
     Active Substance: CITALOPRAM\CITALOPRAM HYDROBROMIDE
     Indication: Product used for unknown indication
     Route: 048
  41. ESCITALOPRAM OXALATE [Suspect]
     Active Substance: ESCITALOPRAM OXALATE
     Indication: Depression
     Route: 065
  42. ESCITALOPRAM OXALATE [Suspect]
     Active Substance: ESCITALOPRAM OXALATE
     Route: 065
  43. ESCITALOPRAM OXALATE [Suspect]
     Active Substance: ESCITALOPRAM OXALATE
     Route: 048
  44. ESCITALOPRAM OXALATE [Suspect]
     Active Substance: ESCITALOPRAM OXALATE
     Dosage: ESCITALOPRAM
     Route: 065
  45. ESCITALOPRAM OXALATE [Suspect]
     Active Substance: ESCITALOPRAM OXALATE
     Dosage: ESCITALOPRAM
     Route: 048
  46. ESCITALOPRAM OXALATE [Suspect]
     Active Substance: ESCITALOPRAM OXALATE
     Dosage: ESCITALOPRAM
     Route: 065
  47. ALTACE [Concomitant]
     Active Substance: RAMIPRIL
     Indication: Product used for unknown indication
     Route: 065

REACTIONS (22)
  - Blood creatine phosphokinase increased [Recovered/Resolved]
  - Electrocardiogram QT prolonged [Recovered/Resolved]
  - Blood potassium increased [Recovered/Resolved]
  - Mechanical ventilation [Recovered/Resolved]
  - Blood pressure decreased [Recovered/Resolved]
  - Bradycardia [Recovered/Resolved]
  - Drug screen positive [Recovering/Resolving]
  - Electrocardiogram abnormal [Recovered/Resolved]
  - Heart rate decreased [Recovered/Resolved]
  - Blood creatinine increased [Recovered/Resolved]
  - Loss of consciousness [Recovered/Resolved]
  - Opiates positive [Recovered/Resolved]
  - Oxygen saturation decreased [Recovered/Resolved]
  - Sinus tachycardia [Recovered/Resolved]
  - Suicide attempt [Recovered/Resolved]
  - Coma scale abnormal [Recovered/Resolved]
  - Hyperkalaemia [Recovered/Resolved]
  - Coma [Recovered/Resolved]
  - Hypotension [Recovered/Resolved]
  - Drug interaction [Recovered/Resolved]
  - Intentional overdose [Recovered/Resolved]
  - Overdose [Recovered/Resolved]
